FAERS Safety Report 5649507-X (Version None)
Quarter: 2008Q1

REPORT INFORMATION
  Report Type: 
  Country: None (occurrence: None)
  Receive Date: 20080304
  Receipt Date: 20080221
  Transmission Date: 20080703
  Serious: Yes (Hospitalization, Other)
  Sender: FDA-Public Use
  Company Number: US-PFIZER INC-2007094573

PATIENT
  Sex: Female
  Weight: 81.6 kg

DRUGS (16)
  1. DETROL LA [Suspect]
     Indication: HYPERTONIC BLADDER
     Dates: start: 20041105, end: 20041119
  2. TRICOR [Concomitant]
     Indication: BLOOD CHOLESTEROL INCREASED
  3. ADVAIR DISKUS 100/50 [Concomitant]
     Indication: ASTHMA
  4. ALBUTEROL [Concomitant]
     Indication: ASTHMA
     Dosage: TEXT:2 PUFFS FOUR TIMES A DAY AS NEEDED
     Route: 055
  5. KLONOPIN [Concomitant]
     Indication: ANXIETY
  6. PAXIL [Concomitant]
     Indication: ANXIETY
  7. PREMARIN [Concomitant]
  8. ALLEGRA [Concomitant]
  9. SINGULAIR [Concomitant]
  10. PREVACID [Concomitant]
  11. MONOPRIL [Concomitant]
  12. GABAPENTIN [Concomitant]
  13. FLUOXETINE [Concomitant]
  14. CYCLOBENZAPRINE HCL [Concomitant]
  15. NAPROXEN [Concomitant]
  16. ASPIRIN [Concomitant]

REACTIONS (17)
  - BACK PAIN [None]
  - BODY TEMPERATURE INCREASED [None]
  - CONSTIPATION [None]
  - DIARRHOEA [None]
  - DIZZINESS [None]
  - HYPOKALAEMIA [None]
  - HYPOTENSION [None]
  - NAUSEA [None]
  - PARALYSIS [None]
  - PYELONEPHRITIS [None]
  - RENAL FAILURE [None]
  - RENAL TUBULAR NECROSIS [None]
  - SEPSIS [None]
  - TACHYCARDIA [None]
  - TACHYPNOEA [None]
  - VOMITING [None]
  - WEIGHT DECREASED [None]
